FAERS Safety Report 6987893-9 (Version None)
Quarter: 2010Q3

REPORT INFORMATION
  Report Type: 
  Country: None (occurrence: None)
  Receive Date: 20100916
  Receipt Date: 20100708
  Transmission Date: 20110219
  Serious: No
  Sender: FDA-Public Use
  Company Number: US-ABBOTT-10P-163-0654010-00

PATIENT
  Sex: Female
  Weight: 86.26 kg

DRUGS (20)
  1. TRILIPIX [Suspect]
     Indication: BLOOD TRIGLYCERIDES INCREASED
     Route: 048
     Dates: start: 20100513, end: 20100623
  2. THYROID TAB [Concomitant]
     Indication: HYPOTHYROIDISM
     Route: 048
  3. AMLODIPINE [Concomitant]
     Indication: HYPERTENSION
     Route: 048
  4. MICARDIS HCT [Concomitant]
     Indication: HYPERTENSION
     Dosage: 80/? DAILY
     Route: 048
  5. SINGULAIR [Concomitant]
     Indication: HYPERSENSITIVITY
     Route: 048
  6. ADVAIR DISKUS 100/50 [Concomitant]
     Indication: EMPHYSEMA
     Dosage: 250/50- 1 IN 1 DAY
     Route: 055
  7. SPIRIVA [Concomitant]
     Indication: EMPHYSEMA
     Route: 055
  8. TYLENOL [Concomitant]
     Indication: ARTHRALGIA
     Route: 048
  9. TYLENOL [Concomitant]
  10. MULTI-VITAMIN [Concomitant]
     Indication: VITAMIN SUPPLEMENTATION
     Route: 048
  11. CALCIUM W/VITAMIN D [Concomitant]
     Indication: MINERAL SUPPLEMENTATION
     Route: 048
  12. ASCORBIC ACID [Concomitant]
     Indication: VITAMIN SUPPLEMENTATION
     Route: 048
  13. LOVAZA [Concomitant]
     Indication: SUPPLEMENTATION THERAPY
     Route: 048
  14. VITAMIN D3 [Concomitant]
     Indication: VITAMIN SUPPLEMENTATION
     Route: 048
  15. VITAMIN E [Concomitant]
     Indication: VITAMIN SUPPLEMENTATION
     Route: 048
  16. ASPIRIN [Concomitant]
     Indication: CARDIAC DISORDER
     Route: 048
  17. VITAMIN-MINERAL COMPOUND TAB [Concomitant]
     Indication: CATARACT
     Route: 048
  18. BENEFIBER [Concomitant]
     Indication: MEDICAL DIET
     Route: 048
  19. BENEFIBER [Concomitant]
     Indication: IRRITABLE BOWEL SYNDROME
  20. OVER THE COUNTER STOOL SOFTENER [Concomitant]
     Indication: IRRITABLE BOWEL SYNDROME
     Route: 048

REACTIONS (1)
  - PAIN IN EXTREMITY [None]
